FAERS Safety Report 16883735 (Version 1)
Quarter: 2019Q4

REPORT INFORMATION
  Report Type: Spontaneous
  Country: DK (occurrence: DK)
  Receive Date: 20191004
  Receipt Date: 20191004
  Transmission Date: 20200122
  Serious: Yes (Hospitalization)
  Sender: FDA-Public Use
  Company Number: DK-TEVA-2019-DK-1117598

PATIENT
  Age: 66 Year
  Sex: Female

DRUGS (5)
  1. PREDNISOLONE. [Suspect]
     Active Substance: PREDNISOLONE
     Indication: PROPHYLAXIS OF NAUSEA AND VOMITING
     Dosage: DOSAGE: VARYING.?STRENGTH: 25 MG.
     Route: 048
     Dates: start: 20170702
  2. FRAGMIN [Suspect]
     Active Substance: DALTEPARIN SODIUM
     Indication: THROMBOSIS PROPHYLAXIS
     Route: 058
     Dates: start: 2017
  3. CARBOPLATIN. [Concomitant]
     Active Substance: CARBOPLATIN
     Indication: LUNG NEOPLASM MALIGNANT
     Dosage: DOSAGE: UNKNOWN. STRENGTH: UNKNOWN.
     Dates: start: 20170703
  4. ALIMTA [Concomitant]
     Active Substance: PEMETREXED DISODIUM
     Indication: LUNG NEOPLASM MALIGNANT
     Dosage: STRENGTH: 100 MG/ 900MG/ 3 WEEKS/ 6 MONTHS
     Dates: start: 201710, end: 20180416
  5. VINORELBINE [Concomitant]
     Active Substance: VINORELBINE TARTRATE
     Indication: LUNG NEOPLASM MALIGNANT
     Dosage: DOSAGE: UNKNOWN. STRENGTH: UNKNOWN.
     Dates: start: 20170703

REACTIONS (9)
  - Osteoporosis [Not Recovered/Not Resolved]
  - Pain [Unknown]
  - Bone decalcification [Not Recovered/Not Resolved]
  - Loss of personal independence in daily activities [Unknown]
  - Walking aid user [Unknown]
  - Back pain [Unknown]
  - Spinal compression fracture [Unknown]
  - Intervertebral disc protrusion [Unknown]
  - Lumbar vertebral fracture [Unknown]

NARRATIVE: CASE EVENT DATE: 2017
